FAERS Safety Report 7015487-8 (Version None)
Quarter: 2010Q3

REPORT INFORMATION
  Report Type: 
  Country: None (occurrence: None)
  Receive Date: 20100923
  Receipt Date: 20100914
  Transmission Date: 20110219
  Serious: Yes (Hospitalization)
  Sender: FDA-Public Use
  Company Number: TCI2010A03855

PATIENT
  Age: 85 Year
  Sex: Male

DRUGS (5)
  1. ACTOS [Suspect]
     Indication: DIABETES MELLITUS
     Dosage: 15 MG (15 MG, 1 D) PER ORAL
     Route: 048
     Dates: start: 20100301, end: 20100914
  2. BASEN (VOGLIBOSE) [Concomitant]
  3. NORVASC [Concomitant]
  4. AMARYL [Concomitant]
  5. ASPIRIN [Concomitant]

REACTIONS (1)
  - MUSCLE TWITCHING [None]
